FAERS Safety Report 9613460 (Version 2)
Quarter: 2014Q2

REPORT INFORMATION
  Report Type: Spontaneous
  Country: US (occurrence: US)
  Receive Date: 20131010
  Receipt Date: 20140409
  Transmission Date: 20141212
  Serious: No
  Sender: FDA-Public Use
  Company Number: US-PFIZER INC-2013290415

PATIENT
  Age: 42 Year
  Sex: Male

DRUGS (5)
  1. LYRICA [Suspect]
     Indication: FIBROMYALGIA
     Dosage: 150 MG, 1X/DAY
     Dates: start: 2013, end: 2013
  2. LYRICA [Suspect]
     Dosage: 225 MG
     Dates: start: 2013, end: 2013
  3. LYRICA [Suspect]
     Dosage: 150 MG, 2X/DAY
     Dates: start: 2013
  4. CYMBALTA [Concomitant]
     Dosage: 90 MG
  5. TESTOSTERONE [Concomitant]
     Dosage: UNK

REACTIONS (1)
  - Vision blurred [Unknown]
